FAERS Safety Report 4883226-2 (Version None)
Quarter: 2006Q1

REPORT INFORMATION
  Report Type: 
  Country: None (occurrence: None)
  Receive Date: 20060118
  Receipt Date: 20060105
  Transmission Date: 20060701
  Serious: Yes (Hospitalization)
  Sender: FDA-Public Use
  Company Number: FR-JNJFOC-20060102412

PATIENT
  Sex: Male

DRUGS (8)
  1. TOPALGIC [Suspect]
     Indication: ARTHRALGIA
     Dosage: 1 DOSE = 1 TABLET
     Route: 048
     Dates: start: 20051105, end: 20051119
  2. DIGOXIN [Suspect]
     Indication: CARDIOMYOPATHY
     Route: 048
     Dates: start: 19980101, end: 20051119
  3. TEMESTA [Concomitant]
     Route: 048
  4. AMAREL [Concomitant]
     Route: 048
  5. ACEBUTOLOL [Concomitant]
     Route: 048
  6. LASILIX [Concomitant]
     Route: 048
  7. AMOXICILLIN AND CLAVULANATE POTASSIUM [Concomitant]
     Route: 065
  8. AMOXICILLIN AND CLAVULANATE POTASSIUM [Concomitant]
     Indication: LUNG DISORDER
     Route: 065

REACTIONS (3)
  - OVERDOSE [None]
  - RENAL FAILURE ACUTE [None]
  - URINARY RETENTION [None]
